FAERS Safety Report 7488700-0 (Version None)
Quarter: 2011Q2

REPORT INFORMATION
  Report Type: 
  Country: None (occurrence: None)
  Receive Date: 20110518
  Receipt Date: 20110512
  Transmission Date: 20111010
  Serious: Yes (Hospitalization)
  Sender: FDA-Public Use
  Company Number: B0719716A

PATIENT
  Sex: Male

DRUGS (6)
  1. RABEPRAZOLE SODIUM [Concomitant]
  2. LASIX [Concomitant]
  3. ARIXTRA [Suspect]
     Indication: PORTAL VEIN THROMBOSIS
     Route: 058
     Dates: start: 20101005, end: 20110407
  4. INSULIN [Concomitant]
  5. LUVION [Concomitant]
     Dosage: 300MG PER DAY
  6. INDERAL [Concomitant]
     Dosage: 120MG PER DAY

REACTIONS (2)
  - MELAENA [None]
  - GASTRITIS [None]
